FAERS Safety Report 26129343 (Version 3)
Quarter: 2025Q4

REPORT INFORMATION
  Report Type: Spontaneous
  Country: EU (occurrence: EU)
  Receive Date: 20251208
  Receipt Date: 20251231
  Transmission Date: 20260117
  Serious: Yes (Death, Hospitalization)
  Sender: SANDOZ
  Company Number: EU-PFIZER-INC-PV202200073827

PATIENT
  Age: 81 Year
  Sex: Female
  Weight: 51 kg

DRUGS (19)
  1. LETROZOLE [Suspect]
     Active Substance: LETROZOLE
     Indication: Breast cancer
     Dosage: UNK
  2. LETROZOLE [Suspect]
     Active Substance: LETROZOLE
     Dosage: 2.5 MG, QD
     Dates: start: 20220517, end: 20220911
  3. LETROZOLE [Suspect]
     Active Substance: LETROZOLE
     Dosage: UNK
  4. FULVESTRANT [Suspect]
     Active Substance: FULVESTRANT
     Indication: Product used for unknown indication
     Dosage: UNK
  5. PALBOCICLIB [Suspect]
     Active Substance: PALBOCICLIB
     Indication: Breast cancer
     Dosage: UNK
  6. PALBOCICLIB [Suspect]
     Active Substance: PALBOCICLIB
     Dosage: 125 MG, QD (DAY 1 TO DAY 21 EVERY 28-DAY CYCLE)
     Dates: start: 20220523, end: 20220904
  7. DENOSUMAB [Concomitant]
     Active Substance: DENOSUMAB
     Indication: Prophylaxis
     Dosage: UNK
  8. METAMIZOLE [Concomitant]
     Active Substance: METAMIZOLE
     Indication: Prophylaxis
     Dosage: UNK
  9. CANDESARTAN [Concomitant]
     Active Substance: CANDESARTAN
     Indication: Prophylaxis
     Dosage: UNK
  10. PANTOPRAZOLE SODIUM [Concomitant]
     Active Substance: PANTOPRAZOLE SODIUM
     Indication: Prophylaxis
     Dosage: UNK
  11. OPIPRAMOL [Concomitant]
     Active Substance: OPIPRAMOL
     Indication: Prophylaxis
     Dosage: UNK
  12. POLYETHYLENE GLYCOLS [Concomitant]
     Active Substance: POLYETHYLENE GLYCOLS
     Indication: Prophylaxis
     Dosage: UNK
  13. MORPHINE HYDROCHLORIDE [Concomitant]
     Active Substance: MORPHINE HYDROCHLORIDE
     Indication: Prophylaxis
     Dosage: UNK
  14. AMLODIPINE BESYLATE [Concomitant]
     Active Substance: AMLODIPINE BESYLATE
     Indication: Prophylaxis
     Dosage: UNK
  15. ONDANSETRON [Concomitant]
     Active Substance: ONDANSETRON
     Indication: Prophylaxis
     Dosage: UNK
  16. ATORVASTATIN [Concomitant]
     Active Substance: ATORVASTATIN
     Indication: Prophylaxis
     Dosage: UNK
  17. ASPIRIN [Concomitant]
     Active Substance: ASPIRIN
     Indication: Prophylaxis
     Dosage: UNK
  18. MAGNESIUM [Concomitant]
     Active Substance: MAGNESIUM
     Indication: Prophylaxis
     Dosage: UNK
  19. VITAMIN B COMPLEX [Concomitant]
     Active Substance: CYANOCOBALAMIN\DEXPANTHENOL\NIACINAMIDE\PYRIDOXINE HYDROCHLORIDE\RIBOFLAVIN 5^-PHOSPHATE SODIUM\THIA
     Indication: Prophylaxis
     Dosage: UNK

REACTIONS (3)
  - Breast cancer [Fatal]
  - Malignant neoplasm progression [Fatal]
  - Erysipelas [Recovered/Resolved]

NARRATIVE: CASE EVENT DATE: 20220929
